FAERS Safety Report 10038520 (Version 2)
Quarter: 2014Q1

REPORT INFORMATION
  Report Type: Spontaneous
  Country: CA (occurrence: CA)
  Receive Date: 20140326
  Receipt Date: 20140326
  Transmission Date: 20141002
  Serious: Yes (Death)
  Sender: FDA-Public Use
  Company Number: CA-PFIZER INC-2014077984

PATIENT
  Sex: Male

DRUGS (3)
  1. XALKORI [Suspect]
     Indication: INFLAMMATORY MYOFIBROBLASTIC TUMOUR
     Dosage: 200 MG, 2X/DAY
     Route: 048
  2. ALBUMIN HUMAN [Concomitant]
     Indication: RENAL FAILURE
     Route: 041
  3. BICARBONATE [Concomitant]
     Indication: RENAL FAILURE
     Route: 041

REACTIONS (2)
  - Death [Fatal]
  - Off label use [Unknown]
